FAERS Safety Report 9377269 (Version 1)
Quarter: 2013Q3

REPORT INFORMATION
  Report Type: Report from Study
  Country: NL (occurrence: NL)
  Receive Date: 20130701
  Receipt Date: 20130701
  Transmission Date: 20140515
  Serious: Yes (Other)
  Sender: FDA-Public Use
  Company Number: NL-MYLANLABS-2013S1013782

PATIENT
  Age: 12 Week
  Sex: Male

DRUGS (1)
  1. PREDNISOLONE [Suspect]
     Indication: HAEMANGIOMA
     Dosage: 3 MG/KG/DAY, IN 3 DIVIDED DOSES
     Route: 048

REACTIONS (3)
  - Cushingoid [Unknown]
  - Increased appetite [Unknown]
  - Restlessness [Unknown]
